FAERS Safety Report 18600363 (Version 1)
Quarter: 2020Q4

REPORT INFORMATION
  Report Type: Spontaneous
  Country: CN (occurrence: CN)
  Receive Date: 20201210
  Receipt Date: 20201210
  Transmission Date: 20210114
  Serious: Yes (Hospitalization, Other)
  Sender: FDA-Public Use
  Company Number: CN-ELI_LILLY_AND_COMPANY-CN202012004039

PATIENT
  Age: 49 Year
  Sex: Male
  Weight: 78 kg

DRUGS (17)
  1. PEMETREXED. [Suspect]
     Active Substance: PEMETREXED
     Dosage: 0.8 MG, CYCLICAL (EVERY 21 DAYS)
     Route: 065
     Dates: start: 20180829
  2. MAGNESIUM ISOGLYCYRRHIZINATE [Concomitant]
     Active Substance: MAGNESIUM ISOGLYCYRRHIZINATE
     Indication: HEPATOBILIARY DISORDER PROPHYLAXIS
     Dosage: 150 MG, DAILY
     Route: 042
  3. MAGNESIUM ISOGLYCYRRHIZINATE [Concomitant]
     Active Substance: MAGNESIUM ISOGLYCYRRHIZINATE
     Indication: ALANINE AMINOTRANSFERASE INCREASED
  4. FOLIC ACID. [Concomitant]
     Active Substance: FOLIC ACID
     Indication: SUPPLEMENTATION THERAPY
     Dosage: 400 UG, DAILY
     Route: 048
  5. CISPLATIN. [Suspect]
     Active Substance: CISPLATIN
     Dosage: 120 MG, CYCLICAL
     Route: 065
  6. SILYBIN [Concomitant]
     Indication: ASPARTATE AMINOTRANSFERASE INCREASED
  7. BICYCLOL [Concomitant]
     Active Substance: BICYCLOL
     Indication: ASPARTATE AMINOTRANSFERASE INCREASED
  8. VITAMIN B12 [HYDROXOCOBALAMIN] [Concomitant]
     Active Substance: HYDROXOCOBALAMIN
     Indication: SUPPLEMENTATION THERAPY
     Dosage: 1000 UG, UNKNOWN
     Route: 030
  9. DEXAMETHASONE [DEXAMETHASONE PHOSPHATE] [Concomitant]
     Indication: SUPPLEMENTATION THERAPY
     Dosage: 4 MG, BID
     Route: 048
  10. SILYBIN [Concomitant]
     Indication: HEPATOBILIARY DISORDER PROPHYLAXIS
     Dosage: 105 MG, TID
     Route: 048
  11. BICYCLOL [Concomitant]
     Active Substance: BICYCLOL
     Indication: HEPATOBILIARY DISORDER PROPHYLAXIS
     Dosage: 25 MG, TID
     Route: 048
  12. BICYCLOL [Concomitant]
     Active Substance: BICYCLOL
     Indication: ALANINE AMINOTRANSFERASE INCREASED
  13. CISPLATIN. [Suspect]
     Active Substance: CISPLATIN
     Indication: LUNG ADENOCARCINOMA
     Dosage: 140 MG, CYCLICAL
     Route: 065
  14. PEMETREXED. [Suspect]
     Active Substance: PEMETREXED
     Indication: LUNG ADENOCARCINOMA
     Dosage: 0.9 MG, CYCLICAL (EVERY 21 DAYS)
     Route: 065
     Dates: start: 20180711, end: 20180805
  15. DIAMMONIUM GLYCYRRHIZINATE [Concomitant]
     Active Substance: HERBALS\DIAMMONIUM GLYCYRRHIZINATE
     Indication: HEPATOBILIARY DISORDER PROPHYLAXIS
     Dosage: 150 MG, TID
     Route: 048
  16. MAGNESIUM ISOGLYCYRRHIZINATE [Concomitant]
     Active Substance: MAGNESIUM ISOGLYCYRRHIZINATE
     Indication: ASPARTATE AMINOTRANSFERASE INCREASED
  17. SILYBIN [Concomitant]
     Indication: ALANINE AMINOTRANSFERASE INCREASED

REACTIONS (11)
  - Diarrhoea [Recovered/Resolved]
  - Nausea [Unknown]
  - Haematemesis [Unknown]
  - Decreased appetite [Unknown]
  - Alanine aminotransferase increased [Recovered/Resolved]
  - Stomatitis [Unknown]
  - Vomiting [Unknown]
  - Myelosuppression [Recovered/Resolved]
  - Vomiting [Unknown]
  - Aspartate aminotransferase increased [Recovered/Resolved]
  - Vomiting [Recovered/Resolved]

NARRATIVE: CASE EVENT DATE: 20180711
